FAERS Safety Report 15675971 (Version 2)
Quarter: 2018Q4

REPORT INFORMATION
  Report Type: Spontaneous
  Country: US (occurrence: US)
  Receive Date: 20181130
  Receipt Date: 20181201
  Transmission Date: 20190205
  Serious: No
  Sender: FDA-Public Use
  Company Number: US-PFIZER INC-2018482296

PATIENT
  Age: 66 Year
  Sex: Female

DRUGS (3)
  1. PIROXICAM. [Suspect]
     Active Substance: PIROXICAM
     Dosage: UNK
  2. MUPIROCIN. [Suspect]
     Active Substance: MUPIROCIN
     Dosage: UNK, 3X/DAY (THREE TIMES A DAY FOR 7 DAYS)
  3. ENBREL [Suspect]
     Active Substance: ETANERCEPT
     Dosage: 1 ML, WEEKLY [ONE TIME EVERY WEEK]

REACTIONS (7)
  - Arthropathy [Unknown]
  - Drug effect decreased [Unknown]
  - Joint warmth [Unknown]
  - Gastrointestinal disorder [Unknown]
  - Swelling [Unknown]
  - Arthritis [Unknown]
  - Foot deformity [Unknown]
